FAERS Safety Report 6959059-X (Version None)
Quarter: 2010Q3

REPORT INFORMATION
  Report Type: 
  Country: None (occurrence: None)
  Receive Date: 20100831
  Receipt Date: 20100823
  Transmission Date: 20110219
  Serious: Yes (Other)
  Sender: FDA-Public Use
  Company Number: CHPA2010US13554

PATIENT
  Age: 57 Year
  Sex: Female
  Weight: 134.69 kg

DRUGS (2)
  1. COMTREX COLD+COUGH NIGHT (NCH) [Suspect]
     Indication: NASOPHARYNGITIS
     Dosage: 2 DF, ONCE/SINGLE
     Route: 048
     Dates: start: 20100822, end: 20100822
  2. COMTREX COLD+COUGH NIGHT (NCH) [Suspect]
     Indication: COUGH

REACTIONS (3)
  - DYSPNOEA [None]
  - HYPERSENSITIVITY [None]
  - RASH PRURITIC [None]
